FAERS Safety Report 13958495 (Version 1)
Quarter: 2017Q3

REPORT INFORMATION
  Report Type: Spontaneous
  Country: US (occurrence: US)
  Receive Date: 20170911
  Receipt Date: 20170911
  Transmission Date: 20171128
  Serious: No
  Sender: FDA-Public Use
  Company Number: US-ROCHE-1939804

PATIENT
  Sex: Male
  Weight: 63.56 kg

DRUGS (2)
  1. TECENTRIQ [Suspect]
     Active Substance: ATEZOLIZUMAB
     Indication: PRODUCT USED FOR UNKNOWN INDICATION
     Route: 065
     Dates: start: 2017
  2. LOMOTIL (ATROPINE SULFATE/DIPHENOXYLATE HYDROCHLORIDE) [Concomitant]
     Indication: DIARRHOEA
     Dosage: DOSES HIGHER THAN PRESCRIBED TO STOP DIARRHEA
     Route: 065

REACTIONS (3)
  - Diarrhoea [Not Recovered/Not Resolved]
  - Weight decreased [Not Recovered/Not Resolved]
  - Decreased appetite [Not Recovered/Not Resolved]
